FAERS Safety Report 8615427-1 (Version None)
Quarter: 2012Q3

REPORT INFORMATION
  Report Type: 
  Country: None (occurrence: None)
  Receive Date: 20120823
  Receipt Date: 20120817
  Transmission Date: 20120928
  Serious: Yes (Death, Hospitalization)
  Sender: FDA-Public Use
  Company Number: CA-JNJFOC-20110509755

PATIENT
  Sex: Male
  Weight: 62 kg

DRUGS (6)
  1. LORAZEPAM [Concomitant]
  2. FLOVENT [Concomitant]
  3. SOLU-CORTEF [Concomitant]
     Indication: PREMEDICATION
     Route: 042
  4. SPIRIVA [Concomitant]
  5. REMICADE [Suspect]
     Indication: CROHN'S DISEASE
     Route: 042
     Dates: start: 20071119, end: 20111007
  6. SYMBICORT [Concomitant]

REACTIONS (4)
  - GASTROINTESTINAL INFECTION [None]
  - DEATH [None]
  - CYSTITIS [None]
  - LUNG NEOPLASM MALIGNANT [None]
